FAERS Safety Report 9081566 (Version 1)
Quarter: 2013Q1

REPORT INFORMATION
  Report Type: Spontaneous
  Country: US (occurrence: US)
  Receive Date: 20130130
  Receipt Date: 20130130
  Transmission Date: 20140127
  Serious: Yes (Death)
  Sender: FDA-Public Use
  Company Number: PHHY2013US007178

PATIENT
  Age: 74 Year
  Sex: Female

DRUGS (3)
  1. METOPROLOL [Suspect]
  2. CYCLOBENZAPRINE [Suspect]
  3. CITALOPRAM [Suspect]

REACTIONS (1)
  - Drug abuse [Fatal]
